FAERS Safety Report 25030581 (Version 1)
Quarter: 2025Q1

REPORT INFORMATION
  Report Type: Spontaneous
  Country: FR (occurrence: FR)
  Receive Date: 20250303
  Receipt Date: 20250303
  Transmission Date: 20250409
  Serious: Yes (Death, Life-Threatening, Hospitalization, Other)
  Sender: GLAND PHARMA LTD
  Company Number: FR-GLANDPHARMA-FR-2025GLNLIT00478

PATIENT
  Age: 60 Year
  Sex: Male

DRUGS (4)
  1. FLUOROURACIL [Suspect]
     Active Substance: FLUOROURACIL
     Indication: Gastric cancer
     Route: 065
  2. LEUCOVORIN [Concomitant]
     Active Substance: LEUCOVORIN\LEUCOVORIN CALCIUM
     Indication: Gastric cancer
     Route: 065
  3. OXALIPLATIN [Concomitant]
     Active Substance: OXALIPLATIN
     Indication: Gastric cancer
     Route: 065
  4. DOCETAXEL [Concomitant]
     Active Substance: DOCETAXEL
     Indication: Gastric cancer
     Route: 065

REACTIONS (7)
  - Pneumonia aspiration [Fatal]
  - Respiratory failure [Fatal]
  - Toxicity to various agents [Fatal]
  - Febrile neutropenia [Fatal]
  - Odynophagia [Fatal]
  - Stomatitis [Fatal]
  - Dyspepsia [Fatal]
